FAERS Safety Report 10152747 (Version 3)
Quarter: 2014Q3

REPORT INFORMATION
  Report Type: Spontaneous
  Country: DE (occurrence: DE)
  Receive Date: 20140505
  Receipt Date: 20140702
  Transmission Date: 20150326
  Serious: Yes (Life-Threatening, Hospitalization, Other)
  Sender: FDA-Public Use
  Company Number: PHHY2014DE050947

PATIENT
  Sex: Male
  Weight: 103 kg

DRUGS (9)
  1. TASIGNA [Suspect]
     Active Substance: NILOTINIB
     Indication: CHRONIC MYELOID LEUKAEMIA
     Dosage: 800 MG, QD
     Dates: start: 20130207, end: 20131219
  2. TICAGRELOR [Concomitant]
     Active Substance: TICAGRELOR
     Dosage: 2 DF, QD
  3. TASIGNA [Suspect]
     Active Substance: NILOTINIB
     Dosage: 600 MG, QD
     Dates: start: 20131220, end: 20140420
  4. BERLINSULIN H BASAL [Concomitant]
     Indication: DIABETES MELLITUS
     Dosage: 20 IU, QD
  5. ASPIRIN. [Concomitant]
     Active Substance: ASPIRIN
     Dosage: 1 DF, QD
  6. BISOPROLOL [Concomitant]
     Active Substance: BISOPROLOL
     Dosage: 1 DF, QD
  7. RAMIPRIL. [Concomitant]
     Active Substance: RAMIPRIL
     Dosage: 1 DF, BID
  8. BERLINSULIN H NORMAL [Concomitant]
     Active Substance: INSULIN NOS
     Indication: DIABETES MELLITUS
     Dosage: 1 DF, TID
  9. EPLERENON GENERIC [Concomitant]
     Dosage: 1 DF, QD

REACTIONS (6)
  - Coronary artery occlusion [Unknown]
  - Coronary artery stenosis [Unknown]
  - Concomitant disease progression [Unknown]
  - Shock [Unknown]
  - Diabetes mellitus inadequate control [Recovering/Resolving]
  - Acute myocardial infarction [Recovered/Resolved with Sequelae]

NARRATIVE: CASE EVENT DATE: 201312
